FAERS Safety Report 8382041-5 (Version None)
Quarter: 2012Q2

REPORT INFORMATION
  Report Type: 
  Country: None (occurrence: None)
  Receive Date: 20120522
  Receipt Date: 20120510
  Transmission Date: 20120825
  Serious: Yes (Other)
  Sender: FDA-Public Use
  Company Number: GB-DEXPHARM-20120503

PATIENT
  Age: 36 Year
  Sex: Female

DRUGS (6)
  1. REYATAZ [Suspect]
  2. FOLIC ACID [Concomitant]
  3. ABACAVIR SULFATE/LAMIVUDINE [Suspect]
     Dosage: 1 DF= ABACAVIR 600 MG + LAMIVUDINE 300 MG
  4. KALETRA [Suspect]
  5. NEVIRAPINE [Suspect]
     Dosage: ACTIVE SUBSTANCES: NEVIRAPINE
  6. OMEPRAZOLE [Suspect]
     Dosage: ACTIVE SUBSTANCES: OMEPRAZOLE

REACTIONS (3)
  - VIRAL LOAD INCREASED [None]
  - PREGNANCY [None]
  - MATERNAL EXPOSURE DURING PREGNANCY [None]
